FAERS Safety Report 8681009 (Version 5)
Quarter: 2012Q4

REPORT INFORMATION
  Report Type: 
  Country: JP (occurrence: JP)
  Receive Date: 20120724
  Receipt Date: 20120924
  Transmission Date: 20130627
  Serious: Yes (Other)
  Sender: FDA-Public Use
  Company Number: JP-PFIZER INC-2012168886

PATIENT
  Age: 70 Year
  Sex: Male

DRUGS (5)
  1. XALATAN [Suspect]
     Indication: GLAUCOMA
     Dosage: 1 drop, 1x/day, both eyes
     Route: 047
     Dates: start: 20120507, end: 20120626
  2. XALATAN [Suspect]
     Dosage: 1 drop, 1x/day, left eye
     Dates: start: 20120507
  3. FLUMETHOLON [Concomitant]
     Indication: PROPHYLAXIS
     Dosage: UNK, both eyes
     Route: 047
     Dates: start: 201205, end: 20120626
  4. FLUMETHOLON [Concomitant]
     Dosage: UNK, left eye
     Dates: start: 201205
  5. DIQUAS [Concomitant]
     Indication: DRY EYE
     Dosage: 1 drop, 3x/day
     Route: 047
     Dates: start: 20120507

REACTIONS (1)
  - Keratitis herpetic [Recovering/Resolving]
